FAERS Safety Report 17926927 (Version 1)
Quarter: 2020Q2

REPORT INFORMATION
  Report Type: Spontaneous
  Country: US (occurrence: US)
  Receive Date: 20200621
  Receipt Date: 20200621
  Transmission Date: 20200714
  Serious: Yes (Hospitalization)
  Sender: FDA-Public Use
  Company Number: None

PATIENT
  Age: 72 Year
  Sex: Male

DRUGS (1)
  1. LISINOPRIL (LISINOPRIL 2.5MG TAB) [Suspect]
     Active Substance: LISINOPRIL
     Indication: HYPERTENSION
     Dates: start: 20191120, end: 20191123

REACTIONS (5)
  - Angioedema [None]
  - Blood pressure increased [None]
  - Therapy cessation [None]
  - Hypotension [None]
  - Self-medication [None]

NARRATIVE: CASE EVENT DATE: 20191123
